FAERS Safety Report 20345837 (Version 1)
Quarter: 2022Q1

REPORT INFORMATION
  Report Type: Spontaneous
  Country: US (occurrence: None)
  Receive Date: 20220115
  Receipt Date: 20220115
  Transmission Date: 20220423
  Serious: No
  Sender: FDA-Public Use
  Company Number: None

PATIENT
  Age: 34 Year
  Sex: Female
  Weight: 56.25 kg

DRUGS (1)
  1. ALBUTEROL SULFATE [Suspect]
     Active Substance: ALBUTEROL SULFATE
     Indication: Asthma
     Dosage: FREQUENCY : AS NEEDED;?
     Route: 055
     Dates: start: 20220107, end: 20220107

REACTIONS (6)
  - Product substitution issue [None]
  - Cough [None]
  - Throat irritation [None]
  - Oropharyngeal pain [None]
  - Dysphonia [None]
  - Device use issue [None]

NARRATIVE: CASE EVENT DATE: 20220107
